FAERS Safety Report 4861859-7 (Version None)
Quarter: 2005Q4

REPORT INFORMATION
  Report Type: 
  Country: None (occurrence: None)
  Receive Date: 20051129
  Receipt Date: 20051003
  Transmission Date: 20060501
  Serious: No
  Sender: FDA-Public Use
  Company Number: WAES 0510USA00897

PATIENT
  Age: 56 Year
  Sex: Female
  Weight: 112.0385 kg

DRUGS (5)
  1. ZETIA [Suspect]
     Indication: HYPERCHOLESTEROLAEMIA
     Dosage: 10 MG DAILY PO
     Route: 048
     Dates: start: 20050826
  2. EFFEXOR [Concomitant]
  3. MOBIC [Concomitant]
  4. SYNTHROID [Concomitant]
  5. ZOLOFT [Concomitant]

REACTIONS (1)
  - HYPERHIDROSIS [None]
